FAERS Safety Report 25249186 (Version 2)
Quarter: 2025Q2

REPORT INFORMATION
  Report Type: Spontaneous
  Country: ES (occurrence: ES)
  Receive Date: 20250429
  Receipt Date: 20250502
  Transmission Date: 20250716
  Serious: Yes (Hospitalization, Other)
  Sender: AUROBINDO
  Company Number: ES-LABALTER-202501344

PATIENT
  Age: 12 Year
  Sex: Female

DRUGS (1)
  1. CETIRIZINE [Suspect]
     Active Substance: CETIRIZINE HYDROCHLORIDE
     Indication: Product used for unknown indication
     Route: 065

REACTIONS (7)
  - Eye movement disorder [Recovered/Resolved]
  - Dystonia [Recovered/Resolved]
  - Transaminases increased [Recovered/Resolved]
  - Electroencephalogram abnormal [Recovered/Resolved]
  - Salivary hypersecretion [Recovered/Resolved]
  - Mutism [Recovered/Resolved]
  - Blood creatine phosphokinase increased [Recovered/Resolved]
